FAERS Safety Report 8765254 (Version 1)
Quarter: 2012Q4

REPORT INFORMATION
  Report Type: 
  Country: JP (occurrence: JP)
  Receive Date: 20120903
  Receipt Date: 20120903
  Transmission Date: 20130627
  Serious: Yes (Hospitalization)
  Sender: FDA-Public Use
  Company Number: JP-ACCORD-014561

PATIENT
  Age: 72 Year
  Sex: Male

DRUGS (1)
  1. GEMCITABINE [Suspect]
     Indication: ADENOCARCINOMA PANCREAS

REACTIONS (2)
  - Disseminated intravascular coagulation [Recovered/Resolved]
  - Thrombocytopenia [Unknown]
